FAERS Safety Report 4332942-X (Version None)
Quarter: 2004Q1

REPORT INFORMATION
  Report Type: 
  Country: None (occurrence: None)
  Receive Date: 20040330
  Receipt Date: 20040316
  Transmission Date: 20041129
  Serious: Yes (Hospitalization)
  Sender: FDA-Public Use
  Company Number: 188700

PATIENT
  Age: 40 Year
  Sex: Female

DRUGS (11)
  1. AVONEX [Suspect]
     Indication: MULTIPLE SCLEROSIS
     Dosage: 30 MCG QW IM
     Route: 030
     Dates: start: 19960601
  2. OXYCONTIN [Concomitant]
  3. NEXIUM [Concomitant]
  4. NEURONTIN [Concomitant]
  5. PROZAC [Concomitant]
  6. ATIVAN [Concomitant]
  7. ZANAFLEX [Concomitant]
  8. BECONASE [Concomitant]
  9. ULTRAM [Concomitant]
  10. SOLU-MEDROL [Concomitant]
  11. NAPRELAN [Concomitant]

REACTIONS (4)
  - EXOSTOSIS [None]
  - INTERVERTEBRAL DISC DEGENERATION [None]
  - POST PROCEDURAL COMPLICATION [None]
  - SPINAL FUSION SURGERY [None]
